FAERS Safety Report 8200437-9 (Version None)
Quarter: 2012Q1

REPORT INFORMATION
  Report Type: 
  Country: None (occurrence: None)
  Receive Date: 20120309
  Receipt Date: 20120309
  Transmission Date: 20120608
  Serious: Yes (Life-Threatening, Hospitalization)
  Sender: FDA-Public Use
  Company Number: None

PATIENT
  Sex: Male
  Weight: 92.2 kg

DRUGS (2)
  1. VANCOMYCIN [Suspect]
     Indication: SURGERY
     Dosage: A FEW MILLIGRAMS ONCE IV
     Route: 042
     Dates: start: 20120222
  2. VANCOMYCIN [Suspect]
     Indication: PROPHYLAXIS
     Dosage: A FEW MILLIGRAMS ONCE IV
     Route: 042
     Dates: start: 20120222

REACTIONS (2)
  - RESPIRATORY ARREST [None]
  - UNRESPONSIVE TO STIMULI [None]
